FAERS Safety Report 18202867 (Version 2)
Quarter: 2020Q4

REPORT INFORMATION
  Report Type: Spontaneous
  Country: SE (occurrence: SE)
  Receive Date: 20200827
  Receipt Date: 20201023
  Transmission Date: 20210113
  Serious: Yes (Life-Threatening, Hospitalization)
  Sender: FDA-Public Use
  Company Number: SE-ASTRAZENECA-2020SF07449

PATIENT
  Age: 29 Year
  Sex: Female

DRUGS (7)
  1. TEMESTA [Concomitant]
     Route: 065
  2. SOBRIL [Concomitant]
     Active Substance: OXAZEPAM
     Route: 065
  3. CEFADROXIL SANDOZ [Suspect]
     Active Substance: CEFADROXIL
     Indication: CYSTITIS
     Dosage: 1000 MG/DAY
     Route: 048
     Dates: start: 20090804, end: 20090804
  4. SEROQUEL [Suspect]
     Active Substance: QUETIAPINE FUMARATE
     Indication: BIPOLAR I DISORDER
     Dosage: UP TO 600 MG
     Route: 048
     Dates: start: 20200710, end: 20200722
  5. SEROQUEL [Suspect]
     Active Substance: QUETIAPINE FUMARATE
     Indication: BIPOLAR I DISORDER
     Route: 048
     Dates: start: 20090722
  6. PROPAVAN [Concomitant]
     Active Substance: PROPIOMAZINE
     Route: 065
  7. CIPRALEX [Concomitant]
     Active Substance: ESCITALOPRAM OXALATE
     Route: 065

REACTIONS (3)
  - Conjunctivitis [Unknown]
  - Stevens-Johnson syndrome [Unknown]
  - Septic shock [Unknown]

NARRATIVE: CASE EVENT DATE: 20090804
